FAERS Safety Report 17432362 (Version 2)
Quarter: 2020Q1

REPORT INFORMATION
  Report Type: Report from Study
  Country: KR (occurrence: KR)
  Receive Date: 20200218
  Receipt Date: 20200304
  Transmission Date: 20200409
  Serious: Yes (Hospitalization)
  Sender: FDA-Public Use
  Company Number: KR-SA-2020SA035508

PATIENT
  Age: 72 Year
  Sex: Male
  Weight: 65.2 kg

DRUGS (7)
  1. DRONEDARONE [Suspect]
     Active Substance: DRONEDARONE
     Indication: ATRIAL FIBRILLATION
     Dosage: UNK
     Dates: start: 20200108, end: 20200116
  2. VALOSARTAN [Concomitant]
     Dosage: UNK
     Dates: start: 20171206
  3. VASTINAN MR [Concomitant]
     Dosage: UNK
     Dates: start: 20171206
  4. CONCOR [Concomitant]
     Active Substance: BISOPROLOL FUMARATE
     Dosage: UNK
     Dates: start: 20140124
  5. NEXILEN S [Concomitant]
     Dosage: UNK
     Dates: start: 20170315
  6. ROSUVAMIBE [Concomitant]
     Dosage: UNK
     Dates: start: 20180103
  7. YUHAN APIXABAN [Concomitant]
     Dosage: UNK
     Dates: start: 20200108

REACTIONS (2)
  - Bradycardia [Recovered/Resolved]
  - Dizziness [Recovered/Resolved]

NARRATIVE: CASE EVENT DATE: 20200116
